FAERS Safety Report 6983365-6 (Version None)
Quarter: 2010Q3

REPORT INFORMATION
  Report Type: 
  Country: None (occurrence: None)
  Receive Date: 20100914
  Receipt Date: 20100914
  Transmission Date: 20110219
  Serious: Yes (Life-Threatening, Hospitalization)
  Sender: FDA-Public Use
  Company Number: None

PATIENT
  Sex: Female
  Weight: 49.8957 kg

DRUGS (1)
  1. YAZ DRSP3 BAYER HEALTHCARE PHARMACEUTICALS [Suspect]
     Indication: MENSTRUAL DISORDER
     Dosage: 1 PILL 1X A DAY PO
     Route: 048
     Dates: start: 20080901, end: 20081211

REACTIONS (1)
  - PULMONARY EMBOLISM [None]
